FAERS Safety Report 18523227 (Version 16)
Quarter: 2022Q3

REPORT INFORMATION
  Report Type: Report from Study
  Country: BR (occurrence: BR)
  Receive Date: 20201119
  Receipt Date: 20220705
  Transmission Date: 20221027
  Serious: Yes (Death, Life-Threatening, Hospitalization, Other)
  Sender: FDA-Public Use
  Company Number: BR-SHIRE-BR202016746

PATIENT
  Age: 12 Year
  Sex: Male
  Weight: 28 kg

DRUGS (14)
  1. IDURSULFASE [Suspect]
     Active Substance: IDURSULFASE
     Indication: Mucopolysaccharidosis II
     Dosage: UNK
     Route: 042
  2. IDURSULFASE [Suspect]
     Active Substance: IDURSULFASE
     Dosage: 2 DOSAGE FORM
     Route: 065
  3. IDURSULFASE [Suspect]
     Active Substance: IDURSULFASE
     Dosage: 2 DOSAGE FORM
     Route: 042
  4. IDURSULFASE [Suspect]
     Active Substance: IDURSULFASE
     Dosage: 2 DOSAGE FORM
     Route: 065
  5. IDURSULFASE [Suspect]
     Active Substance: IDURSULFASE
     Dosage: 2 DOSAGE FORM
     Route: 065
  6. IDURSULFASE [Suspect]
     Active Substance: IDURSULFASE
     Dosage: 2 DOSAGE FORM
     Route: 065
     Dates: start: 2009
  7. IDURSULFASE [Suspect]
     Active Substance: IDURSULFASE
     Dosage: 2 DOSAGE FORM
     Route: 042
     Dates: start: 2009
  8. IDURSULFASE [Suspect]
     Active Substance: IDURSULFASE
     Dosage: 5.75 MILLILITER
     Route: 065
     Dates: start: 200908
  9. IDURSULFASE [Suspect]
     Active Substance: IDURSULFASE
     Dosage: 0.5 MILLIGRAM/KILOGRAM, 1/WEEK
     Route: 042
     Dates: start: 20210318
  10. RISPERIDONE [Concomitant]
     Active Substance: RISPERIDONE
     Indication: Hydrocephalus
     Dosage: UNK, DAILY
     Route: 065
  11. RISPERIDONE [Concomitant]
     Active Substance: RISPERIDONE
     Indication: Agitation
  12. LOSEC [Concomitant]
     Active Substance: OMEPRAZOLE
     Indication: Gastrostomy
     Dosage: UNK, DAILY
     Route: 065
  13. MELATONIN [Concomitant]
     Active Substance: MELATONIN
     Indication: Product used for unknown indication
     Dosage: UNK
     Route: 065
  14. ELECTROLYTES NOS\POLYETHYLENE GLYCOL 3350 [Concomitant]
     Active Substance: ELECTROLYTES NOS\POLYETHYLENE GLYCOL 3350
     Route: 065

REACTIONS (26)
  - Pneumonia viral [Fatal]
  - Septic shock [Unknown]
  - Cardio-respiratory arrest [Unknown]
  - Interstitial lung disease [Unknown]
  - Condition aggravated [Unknown]
  - Anuria [Unknown]
  - Endotracheal intubation complication [Unknown]
  - Unevaluable event [Unknown]
  - Disease complication [Unknown]
  - Acute respiratory distress syndrome [Unknown]
  - Hydrocephalus [Unknown]
  - Mean arterial pressure decreased [Unknown]
  - Suspected COVID-19 [Unknown]
  - Agitation [Unknown]
  - Insomnia [Unknown]
  - Illness [Unknown]
  - Pain [Recovered/Resolved]
  - Weight increased [Unknown]
  - Nasopharyngitis [Recovered/Resolved]
  - Cough [Not Recovered/Not Resolved]
  - Pyrexia [Recovered/Resolved]
  - Therapy interrupted [Unknown]
  - Product dose omission issue [Not Recovered/Not Resolved]
  - Off label use [Unknown]
  - Incorrect dosage administered [Unknown]
  - Product availability issue [Unknown]

NARRATIVE: CASE EVENT DATE: 20200301
